FAERS Safety Report 8090688-9 (Version None)
Quarter: 2012Q1

REPORT INFORMATION
  Report Type: 
  Country: None (occurrence: None)
  Receive Date: 20120124
  Receipt Date: 20120111
  Transmission Date: 20120608
  Serious: Yes (Death)
  Sender: FDA-Public Use
  Company Number: 009167

PATIENT
  Age: 75 Year
  Sex: Female
  Weight: 45.2 kg

DRUGS (18)
  1. PRONASE MS (PRONASE) [Concomitant]
  2. JUSO (SODIUM BICARBONATE) [Concomitant]
  3. GLYCEROL 2.6% [Concomitant]
  4. PURSENNID (SENNOSIDE) [Concomitant]
  5. ALBUMIN (HUMAN) [Suspect]
     Indication: OEDEMA DUE TO HEPATIC DISEASE
     Dosage: 12.5 G GRAM(S), QD, IV DRIP
     Route: 041
     Dates: start: 20100310, end: 20100314
  6. GLUCAGON ^NOVO^ (GLUCAGON) [Concomitant]
  7. OPC-41061 (NEO-MINOPHAGEN C) [Suspect]
     Indication: HEPATIC CIRRHOSIS
     Dosage: 40 ML MILLILITRE(S), QD, IV DRIP
     Route: 041
     Dates: start: 20100106, end: 20100316
  8. PACETOCOOL (CEFOTIAM HYDROCHLORIDE) [Concomitant]
  9. OPC-41061 (OPC-41061) TABLET (TOLVAPTAN) [Suspect]
     Indication: HEPATIC CIRRHOSIS
     Dosage: 7.5 MG, QD, ORAL
     Route: 048
     Dates: start: 20100302, end: 20100308
  10. WARFARIN SODIUM [Concomitant]
  11. LASIX [Concomitant]
  12. POLYMYXIN B SULFATE (POLYMYXIN B SULFATE) [Concomitant]
  13. POSTERISAN (COLIBACILLUS) [Concomitant]
  14. RACOL (PARENTERAL NUTRITION) [Concomitant]
  15. ALDACTONE [Concomitant]
  16. OMEPRAZOLE [Concomitant]
  17. KAKODIN (DOPAMINE HYDROCHLORIDE) [Concomitant]
  18. ALOSENN (ACHILLEA, RUBIA ROOT TINCTURE, SENNA FRUIT, SENNA LEAF, TARAX [Concomitant]

REACTIONS (11)
  - PNEUMONIA [None]
  - CARDIAC FAILURE [None]
  - RESPIRATORY FAILURE [None]
  - HYPONATRAEMIA [None]
  - ATELECTASIS [None]
  - HYPOALBUMINAEMIA [None]
  - ANAEMIA [None]
  - FLUID RETENTION [None]
  - ABDOMINAL DISTENSION [None]
  - CARDIOMEGALY [None]
  - BLOOD PRESSURE DECREASED [None]
